FAERS Safety Report 12530795 (Version 1)
Quarter: 2016Q3

REPORT INFORMATION
  Report Type: Spontaneous
  Country: US (occurrence: None)
  Receive Date: 20160705
  Receipt Date: 20160705
  Transmission Date: 20161109
  Serious: Yes (Hospitalization)
  Sender: FDA-Public Use
  Company Number: None

PATIENT
  Age: 70 Year
  Sex: Male
  Weight: 96.62 kg

DRUGS (26)
  1. COMBIGAN [Concomitant]
     Active Substance: BRIMONIDINE TARTRATE\TIMOLOL MALEATE
  2. ATENOLOL. [Concomitant]
     Active Substance: ATENOLOL
  3. CICYCLOVIR [Concomitant]
  4. ZIRGAN [Concomitant]
     Active Substance: GANCICLOVIR
  5. LANTUS [Concomitant]
     Active Substance: INSULIN GLARGINE
  6. NEXIUM [Concomitant]
     Active Substance: ESOMEPRAZOLE MAGNESIUM
  7. METFORMIN [Concomitant]
     Active Substance: METFORMIN HYDROCHLORIDE
  8. TYLENOL [Concomitant]
     Active Substance: ACETAMINOPHEN
  9. TRESIBA [Concomitant]
     Active Substance: INSULIN DEGLUDEC
  10. MAXITROL [Concomitant]
     Active Substance: DEXAMETHASONE\NEOMYCIN SULFATE\POLYMYXIN B SULFATE
  11. ALKA-SELTZER [Concomitant]
     Active Substance: ANHYDROUS CITRIC ACID\ASPIRIN\SODIUM BICARBONATE
  12. MELOXICAM. [Concomitant]
     Active Substance: MELOXICAM
  13. SIMVASTATIN. [Concomitant]
     Active Substance: SIMVASTATIN
  14. DICLOFENAC [Concomitant]
     Active Substance: DICLOFENAC
  15. TESTOSTERONE CREAM [Concomitant]
     Active Substance: TESTOSTERONE
  16. TESTOSTERONE SHOTS [Concomitant]
     Active Substance: TESTOSTERONE
  17. GABAPENTIN. [Concomitant]
     Active Substance: GABAPENTIN
  18. LISINOPRIL. [Concomitant]
     Active Substance: LISINOPRIL
  19. GLIMEPIRIDE. [Concomitant]
     Active Substance: GLIMEPIRIDE
  20. RANIBIZUMAB 0.3 MG GENENTECH [Suspect]
     Active Substance: RANIBIZUMAB
     Indication: DIABETIC RETINAL OEDEMA
     Dosage: 0.05 MG MONTHLY INTRAVITREAL
     Dates: start: 20140604
  21. Z PACK [Concomitant]
     Active Substance: AZITHROMYCIN DIHYDRATE
  22. EYLEA [Concomitant]
     Active Substance: AFLIBERCEPT
  23. MULTI-VITAMIN [Concomitant]
     Active Substance: .ALPHA.-TOCOPHEROL ACETATE, DL-\ASCORBIC ACID\CYANOCOBALAMIN\FLUORIDE ION\FOLIC ACID\NIACIN\PYRIDOXINE\RIBOFLAVIN\THIAMINE\VITAMIN A\VITAMIN D
  24. TAMSULOSIN [Concomitant]
     Active Substance: TAMSULOSIN
  25. METFORMIN [Concomitant]
     Active Substance: METFORMIN HYDROCHLORIDE
  26. SIMVASTATIN. [Concomitant]
     Active Substance: SIMVASTATIN

REACTIONS (2)
  - Oedema peripheral [None]
  - Cardiac disorder [None]

NARRATIVE: CASE EVENT DATE: 20160601
